FAERS Safety Report 17521907 (Version 2)
Quarter: 2020Q1

REPORT INFORMATION
  Report Type: Report from Study
  Country: CA (occurrence: CA)
  Receive Date: 20200310
  Receipt Date: 20200331
  Transmission Date: 20200409
  Serious: Yes (Death, Hospitalization, Disabling, Other)
  Sender: FDA-Public Use
  Company Number: CA-MYLANLABS-2020M1004853

PATIENT
  Sex: Male
  Weight: 82 kg

DRUGS (15)
  1. ATIVAN [Concomitant]
     Active Substance: LORAZEPAM
     Dosage: 0.25, UNK, PRN
  2. TYLENOL [Concomitant]
     Active Substance: ACETAMINOPHEN
     Dosage: 650, UNK, QID
  3. ASA [Concomitant]
     Active Substance: ASPIRIN
     Dosage: 80 DAY
  4. COLACE [Concomitant]
     Active Substance: DOCUSATE SODIUM
     Dosage: 100, UNK, BID
  5. CLOZAPINE. [Suspect]
     Active Substance: CLOZAPINE
     Dosage: 400 MILLIGRAM, HS
     Route: 048
     Dates: start: 2016, end: 2019
  6. SINEMET [Concomitant]
     Active Substance: CARBIDOPA\LEVODOPA
     Dosage: 2 TAB TID
  7. VITAMIN D                          /00107901/ [Concomitant]
     Active Substance: ERGOCALCIFEROL
     Dosage: TUESDAY
  8. ATROPINE. [Concomitant]
     Active Substance: ATROPINE
     Dosage: 1 PERCENT, TID
  9. BISACODYL. [Concomitant]
     Active Substance: BISACODYL
     Dosage: UNK
  10. SYNTHROID [Concomitant]
     Active Substance: LEVOTHYROXINE SODIUM
     Dosage: 0.088 DAY
  11. DILAUDID [Concomitant]
     Active Substance: HYDROMORPHONE HYDROCHLORIDE
     Dosage: 0.5, 2H, PRN
  12. CLOZAPINE. [Suspect]
     Active Substance: CLOZAPINE
     Indication: SCHIZOPHRENIA
     Dosage: UNK
     Dates: start: 20160704
  13. LAX-A-DAY [Concomitant]
     Dosage: 17 GRAM
  14. MAALOX ANTACID [Concomitant]
     Active Substance: ALUMINUM HYDROXIDE\DIMETHICONE\MAGNESIUM HYDROXIDE
     Dosage: UNK
  15. DIVALPROEX [Concomitant]
     Active Substance: DIVALPROEX SODIUM
     Dosage: 625, UNK, PM

REACTIONS (2)
  - Ischaemic cardiomyopathy [Not Recovered/Not Resolved]
  - Cardiac failure [Fatal]
